FAERS Safety Report 10273275 (Version 1)
Quarter: 2014Q1

REPORT INFORMATION
  Report Type: Spontaneous
  Country: US (occurrence: None)
  Receive Date: 20140306
  Receipt Date: 20140306
  Transmission Date: 20141002
  Serious: Yes (Life-Threatening, Hospitalization)
  Sender: FDA-Public Use
  Company Number: 163-21880-13083714

PATIENT
  Age: 55 Year
  Sex: Female

DRUGS (9)
  1. REVLIMID (LENALIDOMIDE) (10 MILLIGRAM, CAPSULES) [Suspect]
     Indication: PLASMA CELL MYELOMA
     Dosage: 20 MG, 14 IN 14 D, PO
     Route: 048
     Dates: start: 200901, end: 200904
  2. LASIX (FUROSEMIDE) (UNKNOWN) [Concomitant]
  3. VELCADE (BORTEZOMIB) (UNKNOWN) [Concomitant]
  4. ASPIRIN (ACETYLSALICYLIC ACID) (ENTERIC-COATED TABLET) [Concomitant]
  5. POTASSIUM (POTASSIUM) (UNKNOWN) [Concomitant]
  6. DEXAMETHASONE (DEXAMETHASONE) (UNKNOWN) [Concomitant]
  7. HYZAAR (HYZAAR) (UNKNOWN) [Concomitant]
  8. CYTOXAN (CYCLOPHOSPHAMIDE) (UNKNOWN) [Concomitant]
  9. ZOMETA (ZOLEDRONIC ACID) (UNKNOWN) [Concomitant]

REACTIONS (1)
  - Deep vein thrombosis [None]
